FAERS Safety Report 8571501-X (Version None)
Quarter: 2012Q3

REPORT INFORMATION
  Report Type: 
  Country: None (occurrence: None)
  Receive Date: 20120806
  Receipt Date: 20120727
  Transmission Date: 20120928
  Serious: Yes (Life-Threatening, Hospitalization, Disabling)
  Sender: FDA-Public Use
  Company Number: CA-JNJFOC-20120714346

PATIENT
  Sex: Male
  Weight: 73 kg

DRUGS (2)
  1. REMICADE [Suspect]
     Indication: CROHN'S DISEASE
     Route: 042
     Dates: start: 20091127
  2. METHOTREXATE [Concomitant]
     Dosage: 3 TABLETS WEEKLY
     Route: 048

REACTIONS (6)
  - VISUAL IMPAIRMENT [None]
  - NECROTISING FASCIITIS [None]
  - PAIN [None]
  - PSYCHOMOTOR SKILLS IMPAIRED [None]
  - COMA [None]
  - AMNESIA [None]
